FAERS Safety Report 9174468 (Version 1)
Quarter: 2013Q1

REPORT INFORMATION
  Report Type: Spontaneous
  Country: SE (occurrence: SE)
  Receive Date: 20130320
  Receipt Date: 20130320
  Transmission Date: 20140127
  Serious: Yes (Other)
  Sender: FDA-Public Use
  Company Number: PHHY2013SE027003

PATIENT
  Sex: Male

DRUGS (1)
  1. SANDIMMUN / NEORAL/ OL 27-400/ OLO 400 [Suspect]
     Indication: NEPHROTIC SYNDROME

REACTIONS (2)
  - Abdominal pain [Unknown]
  - Amylase increased [Recovered/Resolved]
